FAERS Safety Report 23547742 (Version 1)
Quarter: 2024Q1

REPORT INFORMATION
  Report Type: Other
  Country: JP (occurrence: JP)
  Receive Date: 20240221
  Receipt Date: 20240221
  Transmission Date: 20240410
  Serious: Yes (Other)
  Sender: FDA-Public Use
  Company Number: JP-CHUGAI-2024004730

PATIENT
  Age: 66 Year
  Sex: Male

DRUGS (4)
  1. FARICIMAB [Suspect]
     Active Substance: FARICIMAB
     Indication: Neovascular age-related macular degeneration
     Dosage: RIGHT EYE
     Route: 050
     Dates: start: 20221108, end: 20221108
  2. FARICIMAB [Suspect]
     Active Substance: FARICIMAB
     Dosage: RIGHT EYE
     Route: 050
     Dates: start: 20221206, end: 20221206
  3. FARICIMAB [Suspect]
     Active Substance: FARICIMAB
     Dosage: RIGHT EYE
     Route: 050
     Dates: start: 20230110, end: 20230110
  4. FARICIMAB [Suspect]
     Active Substance: FARICIMAB
     Dosage: RIGHT EYE
     Route: 050
     Dates: start: 20230207, end: 20230207

REACTIONS (1)
  - Retinal haemorrhage [Recovering/Resolving]

NARRATIVE: CASE EVENT DATE: 20230329
